FAERS Safety Report 4650674-5 (Version None)
Quarter: 2005Q2

REPORT INFORMATION
  Report Type: 
  Country: None (occurrence: None)
  Receive Date: 20050429
  Receipt Date: 20050415
  Transmission Date: 20051028
  Serious: Yes (Hospitalization)
  Sender: FDA-Public Use
  Company Number: 230075M05USA

PATIENT
  Sex: Female

DRUGS (7)
  1. REBIF [Suspect]
     Indication: MULTIPLE SCLEROSIS
  2. AGGRENOX [Suspect]
  3. TYLENOL [Suspect]
  4. AMBIEN [Concomitant]
  5. CELEXA [Concomitant]
  6. ALLEGRA [Concomitant]
  7. PREVACID [Concomitant]

REACTIONS (5)
  - CEREBROVASCULAR ACCIDENT [None]
  - GASTRITIS [None]
  - HEPATITIS [None]
  - INFLUENZA LIKE ILLNESS [None]
  - URINARY TRACT INFECTION [None]
